FAERS Safety Report 4656014-X (Version None)
Quarter: 2005Q2

REPORT INFORMATION
  Report Type: 
  Country: None (occurrence: None)
  Receive Date: 20050506
  Receipt Date: 20050506
  Transmission Date: 20051028
  Serious: Yes (Hospitalization)
  Sender: FDA-Public Use
  Company Number: None

PATIENT
  Sex: Female
  Weight: 67.1 kg

DRUGS (10)
  1. TAXOTERE [Suspect]
     Indication: ENDOMETRIAL CANCER
     Dosage: 49MG IVSS WEEKLY X 3
     Route: 042
     Dates: start: 20050418
  2. TAXOTERE [Suspect]
     Indication: NEOPLASM RECURRENCE
     Dosage: 49MG IVSS WEEKLY X 3
     Route: 042
     Dates: start: 20050418
  3. TAXOTERE [Suspect]
     Indication: ENDOMETRIAL CANCER
     Dosage: 49MG IVSS WEEKLY X 3
     Route: 042
     Dates: start: 20050425
  4. TAXOTERE [Suspect]
     Indication: NEOPLASM RECURRENCE
     Dosage: 49MG IVSS WEEKLY X 3
     Route: 042
     Dates: start: 20050425
  5. TOPOTECAN 3.5MG/M2  GLAXO SMITHKLINE [Suspect]
     Indication: ENDOMETRIAL CANCER
     Dosage: 5.7MG IVSS WEEKLY X 3
     Route: 042
     Dates: start: 20050418
  6. TOPOTECAN 3.5MG/M2  GLAXO SMITHKLINE [Suspect]
     Indication: NEOPLASM RECURRENCE
     Dosage: 5.7MG IVSS WEEKLY X 3
     Route: 042
     Dates: start: 20050418
  7. TOPOTECAN 3.5MG/M2  GLAXO SMITHKLINE [Suspect]
     Indication: ENDOMETRIAL CANCER
     Dosage: 5.7MG IVSS WEEKLY X 3
     Route: 042
     Dates: start: 20050425
  8. TOPOTECAN 3.5MG/M2  GLAXO SMITHKLINE [Suspect]
     Indication: NEOPLASM RECURRENCE
     Dosage: 5.7MG IVSS WEEKLY X 3
     Route: 042
     Dates: start: 20050425
  9. OXYCONTIN [Concomitant]
  10. VICODIN [Concomitant]

REACTIONS (4)
  - ANAEMIA [None]
  - NAUSEA [None]
  - REFUSAL OF TREATMENT BY PATIENT [None]
  - VOMITING [None]
